FAERS Safety Report 25553345 (Version 1)
Quarter: 2025Q3

REPORT INFORMATION
  Report Type: Spontaneous
  Country: EU (occurrence: EU)
  Receive Date: 20250715
  Receipt Date: 20250715
  Transmission Date: 20251020
  Serious: Yes (Life-Threatening, Other)
  Sender: BAXTER
  Company Number: None

PATIENT
  Age: 73 Year
  Sex: Female
  Weight: 71 kg

DRUGS (3)
  1. IFOSFAMIDE [Suspect]
     Active Substance: IFOSFAMIDE
     Indication: Malignant fibrous histiocytoma
     Dosage: 5280 MG, QD
     Route: 042
     Dates: start: 20250618, end: 20250619
  2. MESNA [Suspect]
     Active Substance: MESNA
     Indication: Malignant fibrous histiocytoma
     Dosage: 6300 MG, QD
     Route: 042
     Dates: start: 20250618, end: 20250619
  3. DOXORUBICIN [Suspect]
     Active Substance: DOXORUBICIN
     Indication: Malignant fibrous histiocytoma
     Route: 042
     Dates: start: 20250618, end: 20250619

REACTIONS (1)
  - Toxic encephalopathy [Recovered/Resolved]

NARRATIVE: CASE EVENT DATE: 20250620
